FAERS Safety Report 6969292-9 (Version None)
Quarter: 2010Q3

REPORT INFORMATION
  Report Type: 
  Country: None (occurrence: None)
  Receive Date: 20100907
  Receipt Date: 20100826
  Transmission Date: 20110219
  Serious: Yes (Death, Hospitalization)
  Sender: FDA-Public Use
  Company Number: JP-AMGEN-QUU436121

PATIENT
  Sex: Male
  Weight: 41 kg

DRUGS (8)
  1. ENBREL [Suspect]
     Indication: RHEUMATOID ARTHRITIS
     Route: 058
     Dates: start: 20100118, end: 20100204
  2. ENBREL [Suspect]
     Route: 058
     Dates: start: 20100208, end: 20100329
  3. ENBREL [Suspect]
     Route: 058
     Dates: start: 20100405, end: 20100805
  4. PROGRAF [Concomitant]
     Indication: RHEUMATOID ARTHRITIS
     Route: 048
     Dates: start: 20100517, end: 20100805
  5. BENET [Concomitant]
     Indication: OSTEOPOROSIS
     Route: 048
     Dates: start: 20100107, end: 20100805
  6. PREDNISOLONE [Concomitant]
     Indication: RHEUMATOID ARTHRITIS
     Route: 048
     Dates: start: 20100107, end: 20100131
  7. PREDNISOLONE [Concomitant]
     Route: 048
     Dates: start: 20100201, end: 20100215
  8. PREDNISOLONE [Concomitant]
     Route: 048
     Dates: start: 20100216, end: 20100805

REACTIONS (4)
  - CONDITION AGGRAVATED [None]
  - INTERSTITIAL LUNG DISEASE [None]
  - PNEUMONIA STREPTOCOCCAL [None]
  - RESPIRATORY FAILURE [None]
